FAERS Safety Report 6189219-X (Version None)
Quarter: 2009Q2

REPORT INFORMATION
  Report Type: 
  Country: None (occurrence: None)
  Receive Date: 20090512
  Receipt Date: 20090504
  Transmission Date: 20091009
  Serious: Yes (Hospitalization)
  Sender: FDA-Public Use
  Company Number: IDA-00205

PATIENT
  Age: 61 Year
  Sex: Male

DRUGS (6)
  1. PROPRANOLOL [Suspect]
     Dates: start: 20081205, end: 20090114
  2. TEGRETOL [Suspect]
     Dosage: 600 MG DAILY
     Dates: start: 20081205, end: 20090114
  3. ALLOPURINOL          STRENGTH 1DF [Suspect]
     Dosage: 1DF DAILY
     Dates: start: 20060101, end: 20090114
  4. ANAFRANIL [Concomitant]
  5. NICARDIPINE HCL [Concomitant]
  6. BI[RETERAX   ( INDAPAMIDE, PERINDOPRIL ERBUMINE) [Concomitant]

REACTIONS (2)
  - CYTOLYTIC HEPATITIS [None]
  - DRUG RASH WITH EOSINOPHILIA AND SYSTEMIC SYMPTOMS [None]
